FAERS Safety Report 25685985 (Version 2)
Quarter: 2025Q3

REPORT INFORMATION
  Report Type: Report from Study
  Country: US (occurrence: US)
  Receive Date: 20250815
  Receipt Date: 20250819
  Transmission Date: 20251021
  Serious: No
  Sender: TAIHO ONCOLOGY INC
  Company Number: US-TAIHOP-2025-008599

PATIENT
  Age: 71 Year
  Sex: Male

DRUGS (1)
  1. INQOVI [Suspect]
     Active Substance: CEDAZURIDINE\DECITABINE
     Indication: Myelodysplastic syndrome
     Dosage: 35MG DECITABINE AND 100MG CEDAZURIDINE?CYCLE UNKNOWN.
     Route: 048

REACTIONS (1)
  - Disease progression [Unknown]
